FAERS Safety Report 5737695-6 (Version None)
Quarter: 2008Q2

REPORT INFORMATION
  Report Type: 
  Country: None (occurrence: None)
  Receive Date: 20080512
  Receipt Date: 20080512
  Transmission Date: 20081010
  Serious: Yes (Other)
  Sender: FDA-Public Use
  Company Number: None

PATIENT
  Age: 41 Year
  Sex: Female
  Weight: 58.9676 kg

DRUGS (1)
  1. CREST PRO-HEALTH RINSE [Suspect]
     Indication: DENTAL DISORDER PROPHYLAXIS
     Dosage: AS INDICATED ON BOTTLE  ONE TIME PER DAY DENTAL
     Route: 004
     Dates: start: 20070201, end: 20070801

REACTIONS (1)
  - TOOTH DISCOLOURATION [None]
